FAERS Safety Report 6964785-2 (Version None)
Quarter: 2010Q3

REPORT INFORMATION
  Report Type: 
  Country: None (occurrence: None)
  Receive Date: 20100903
  Receipt Date: 20100826
  Transmission Date: 20110219
  Serious: Yes (Other)
  Sender: FDA-Public Use
  Company Number: US-PFIZER INC-2010108144

PATIENT

DRUGS (2)
  1. CHANTIX [Suspect]
     Dosage: UNK
     Dates: start: 20070101
  2. CHANTIX [Suspect]
     Dosage: UNK
     Dates: start: 20090601

REACTIONS (5)
  - ANGER [None]
  - DEPRESSION [None]
  - MOOD ALTERED [None]
  - NERVOUSNESS [None]
  - NIGHTMARE [None]
